FAERS Safety Report 5637804-3 (Version None)
Quarter: 2008Q1

REPORT INFORMATION
  Report Type: 
  Country: None (occurrence: None)
  Receive Date: 20080220
  Receipt Date: 20080205
  Transmission Date: 20080703
  Serious: Yes (Hospitalization, Other)
  Sender: FDA-Public Use
  Company Number: 2008S1000067

PATIENT
  Age: 61 Year
  Sex: Female

DRUGS (5)
  1. CUBICIN [Suspect]
     Indication: STAPHYLOCOCCAL BACTERAEMIA
     Dosage: 6 MG/KG; Q48H; IV
     Route: 042
     Dates: start: 20080119, end: 20080131
  2. LEVOFLOXACIN [Suspect]
     Indication: STAPHYLOCOCCAL BACTERAEMIA
     Dates: start: 20080125, end: 20080131
  3. NAFCILLIN SODIUM [Concomitant]
  4. VANCOMYCIN [Concomitant]
  5. LEVOFLOXACIN [Concomitant]

REACTIONS (4)
  - EOSINOPHILIA [None]
  - IMMUNOSUPPRESSION [None]
  - LEUKOPENIA [None]
  - URINARY TRACT INFECTION [None]
